FAERS Safety Report 8956496 (Version 1)
Quarter: 2012Q4

REPORT INFORMATION
  Report Type: 
  Country: GB (occurrence: GB)
  Receive Date: 20121210
  Receipt Date: 20121210
  Transmission Date: 20130627
  Serious: Yes (Life-Threatening, Hospitalization, Disabling, Other)
  Sender: FDA-Public Use
  Company Number: PHHY2012GB112786

PATIENT
  Age: 50 Year
  Sex: Male
  Weight: 90 kg

DRUGS (7)
  1. WARFARIN [Suspect]
     Indication: DEEP VEIN THROMBOSIS
     Dosage: 4 mg, QD
     Route: 048
  2. FRUSEMIDE [Concomitant]
     Dosage: 80 mg, QD
     Route: 048
     Dates: end: 20121116
  3. BEZAFIBRATE [Concomitant]
     Indication: HYPERCHOLESTEROLAEMIA
     Dosage: 400 mg, QD
     Route: 048
     Dates: end: 20121116
  4. DAKTACORT [Concomitant]
     Route: 061
     Dates: end: 20121116
  5. DERMOL [Concomitant]
     Route: 061
     Dates: end: 20121116
  6. MODAFINIL [Concomitant]
     Dosage: 100 mg, BID
     Route: 048
  7. FLUTICASONE [Concomitant]
     Route: 045
     Dates: start: 20111012

REACTIONS (2)
  - Subdural haemorrhage [Not Recovered/Not Resolved]
  - Fall [Unknown]
